FAERS Safety Report 6318559-6 (Version None)
Quarter: 2009Q3

REPORT INFORMATION
  Report Type: 
  Country: None (occurrence: None)
  Receive Date: 20090821
  Receipt Date: 20090810
  Transmission Date: 20100115
  Serious: Yes (Hospitalization)
  Sender: FDA-Public Use
  Company Number: PHEH2009US09087

PATIENT
  Sex: Female
  Weight: 77.551 kg

DRUGS (6)
  1. EXJADE [Suspect]
     Indication: IRON OVERLOAD
     Dosage: 1750 MG DAILY
     Route: 048
     Dates: start: 20090513, end: 20090807
  2. ALBUTEROL [Concomitant]
     Dosage: 2 PUFFS, Q6H + PRN
     Route: 048
     Dates: start: 20090205
  3. TYLENOL (CAPLET) [Concomitant]
     Dosage: 650 MG, Q4H PRN
     Route: 048
     Dates: start: 20090205
  4. PEPCID [Concomitant]
     Dosage: 20 MG, QD
     Route: 048
     Dates: start: 20090205
  5. ATIVAN [Concomitant]
     Dosage: 0.5 MG, Q4H PRN
     Route: 048
     Dates: start: 20090205
  6. DARVOCET-N 100 [Concomitant]
     Dosage: 100 MG, Q4H PRN
     Route: 048
     Dates: start: 20090205

REACTIONS (28)
  - APHASIA [None]
  - ASTHENIA [None]
  - BLOOD ALBUMIN DECREASED [None]
  - BLOOD CHLORIDE DECREASED [None]
  - BLOOD CREATININE INCREASED [None]
  - BLOOD UREA INCREASED [None]
  - CHRONIC OBSTRUCTIVE PULMONARY DISEASE [None]
  - CONFUSIONAL STATE [None]
  - DEHYDRATION [None]
  - ENCEPHALOPATHY [None]
  - GENERAL PHYSICAL HEALTH DETERIORATION [None]
  - HAEMATOCRIT DECREASED [None]
  - HAEMOGLOBIN DECREASED [None]
  - HYPOPHAGIA [None]
  - LUNG CANCER METASTATIC [None]
  - LYMPHOCYTE PERCENTAGE DECREASED [None]
  - MAJOR DEPRESSION [None]
  - MEAN PLATELET VOLUME DECREASED [None]
  - METASTASES TO CENTRAL NERVOUS SYSTEM [None]
  - MONOCYTE PERCENTAGE DECREASED [None]
  - NEUTROPHIL PERCENTAGE INCREASED [None]
  - PLATELET COUNT INCREASED [None]
  - PROTEIN TOTAL DECREASED [None]
  - RED BLOOD CELL COUNT DECREASED [None]
  - RED CELL DISTRIBUTION WIDTH INCREASED [None]
  - RENAL FAILURE ACUTE [None]
  - SERUM FERRITIN INCREASED [None]
  - WHITE BLOOD CELL COUNT INCREASED [None]
